FAERS Safety Report 15866725 (Version 2)
Quarter: 2019Q2

REPORT INFORMATION
  Report Type: Report from Study
  Country: DE (occurrence: DE)
  Receive Date: 20190125
  Receipt Date: 20190503
  Transmission Date: 20190711
  Serious: Yes (Other)
  Sender: FDA-Public Use
  Company Number: DE-JNJFOC-20190121230

PATIENT
  Age: 9 Decade
  Sex: Male
  Weight: 98 kg

DRUGS (10)
  1. XIPAMIDE [Concomitant]
     Active Substance: XIPAMIDE
  2. DOXAZOSIN [Concomitant]
     Active Substance: DOXAZOSIN\DOXAZOSIN MESYLATE
  3. SIOFOR [Concomitant]
     Active Substance: METFORMIN HYDROCHLORIDE
  4. THYROSOL [Concomitant]
  5. XELEVIA [Concomitant]
     Active Substance: SITAGLIPTIN PHOSPHATE
  6. TORASEMID [Concomitant]
     Active Substance: TORSEMIDE
  7. STELARA [Suspect]
     Active Substance: USTEKINUMAB
     Indication: PSORIASIS
     Route: 058
     Dates: start: 20090420
  8. BISOHEXAL [Concomitant]
     Active Substance: BISOPROLOL FUMARATE
  9. INSULIN [Concomitant]
     Active Substance: INSULIN NOS
  10. VALSARTAN. [Concomitant]
     Active Substance: VALSARTAN

REACTIONS (2)
  - Basal cell carcinoma [Recovered/Resolved]
  - Osteoarthritis [Unknown]

NARRATIVE: CASE EVENT DATE: 20180705
